FAERS Safety Report 9179605 (Version 1)
Quarter: 2012Q4

REPORT INFORMATION
  Report Type: 
  Country: US (occurrence: US)
  Receive Date: 20121029
  Receipt Date: 20121029
  Transmission Date: 20130627
  Serious: Yes (Hospitalization)
  Sender: FDA-Public Use
  Company Number: US-GLAXOSMITHKLINE-A0991365A

PATIENT
  Age: 56 Year
  Sex: Male
  Weight: 80.7 kg

DRUGS (11)
  1. VENTOLIN [Suspect]
     Indication: CHRONIC OBSTRUCTIVE PULMONARY DISEASE
     Dosage: 90MCG As required
     Route: 055
     Dates: start: 20120323, end: 20120701
  2. ADVAIR [Suspect]
     Indication: CHRONIC OBSTRUCTIVE PULMONARY DISEASE
     Dosage: 1PUFF Twice per day
     Route: 055
     Dates: start: 20110630
  3. STUDY MEDICATION [Suspect]
     Indication: CHRONIC OBSTRUCTIVE PULMONARY DISEASE
     Route: 048
     Dates: start: 20120323, end: 20120701
  4. HYDROCODONE [Concomitant]
     Indication: BACK PAIN
     Route: 048
     Dates: start: 200401
  5. MIRTAZAPINE [Concomitant]
     Indication: DEPRESSION
     Dosage: 45MG Per day
     Route: 048
     Dates: start: 2008
  6. ASPIRIN [Concomitant]
     Dosage: 81MG Per day
     Route: 048
     Dates: start: 2004
  7. NEXIUM [Concomitant]
     Indication: GASTROOESOPHAGEAL REFLUX DISEASE
     Dosage: 40MG Per day
     Route: 048
     Dates: start: 2006
  8. LEVOTHYROXINE [Concomitant]
     Indication: HYPOTHYROIDISM
     Dosage: 175MCG Per day
     Route: 048
     Dates: start: 2006
  9. ATORVASTATIN [Concomitant]
     Indication: BLOOD CHOLESTEROL
     Dosage: 80MG Per day
     Route: 048
     Dates: start: 2008
  10. CITALOPRAM HYDROBROMIDE [Concomitant]
     Indication: DEPRESSION
     Dosage: 40MG Per day
     Route: 048
     Dates: start: 2009
  11. ENALAPRIL [Concomitant]
     Indication: HYPERTENSION
     Dosage: 45MG Per day
     Route: 048
     Dates: start: 2009

REACTIONS (8)
  - Pneumonia [Recovered/Resolved]
  - Pneumothorax [Unknown]
  - Pleural effusion [Unknown]
  - Asthenia [Unknown]
  - Malaise [Unknown]
  - Headache [Unknown]
  - Nausea [Unknown]
  - Malnutrition [Unknown]
